FAERS Safety Report 11282627 (Version 1)
Quarter: 2015Q3

REPORT INFORMATION
  Report Type: Spontaneous
  Country: US (occurrence: None)
  Receive Date: 20150716
  Receipt Date: 20150716
  Transmission Date: 20151125
  Serious: Yes (Hospitalization)
  Sender: FDA-Public Use
  Company Number: US-H14001-15-01112

PATIENT
  Age: 57 Year
  Sex: Male

DRUGS (3)
  1. AMIODARONE (AMIODARONE) (UNKNOWN) (AMIODARONE) [Suspect]
     Active Substance: AMIODARONE
     Indication: ATRIAL FIBRILLATION
  2. METOPROLOL [Concomitant]
     Active Substance: METOPROLOL
  3. ANTICOAGULATION (ALL OTHER THERAPEUTIC PRODUCTS) [Concomitant]

REACTIONS (15)
  - Hypoxia [None]
  - Chest pain [None]
  - Tachypnoea [None]
  - Inflammatory marker increased [None]
  - Atrioventricular block first degree [None]
  - Pulmonary toxicity [None]
  - Leukocytosis [None]
  - International normalised ratio increased [None]
  - Drug level increased [None]
  - Dyspnoea [None]
  - Respiratory rate increased [None]
  - Neutrophilia [None]
  - Oxygen saturation decreased [None]
  - Electrocardiogram QT prolonged [None]
  - Pneumonia [None]
